FAERS Safety Report 10284211 (Version 2)
Quarter: 2014Q3

REPORT INFORMATION
  Report Type: Spontaneous
  Country: US (occurrence: US)
  Receive Date: 20140708
  Receipt Date: 20140722
  Transmission Date: 20150326
  Serious: Yes (Disabling)
  Sender: FDA-Public Use
  Company Number: US-009507513-1407USA001105

PATIENT
  Sex: Female

DRUGS (7)
  1. REMERON [Suspect]
     Active Substance: MIRTAZAPINE
  2. ABILIFY [Concomitant]
     Active Substance: ARIPIPRAZOLE
  3. ZOLOFT [Concomitant]
     Active Substance: SERTRALINE HYDROCHLORIDE
  4. DETROL LA [Concomitant]
     Active Substance: TOLTERODINE TARTRATE
  5. PROTONIX [Concomitant]
     Active Substance: PANTOPRAZOLE SODIUM
  6. SYNTHROID [Concomitant]
     Active Substance: LEVOTHYROXINE SODIUM
  7. LYRICA [Concomitant]
     Active Substance: PREGABALIN

REACTIONS (7)
  - Hallucinations, mixed [Unknown]
  - Hypoaesthesia [Unknown]
  - Pain in extremity [Unknown]
  - Anxiety [Unknown]
  - Paraesthesia [Unknown]
  - Arthralgia [Unknown]
  - Nerve injury [Unknown]
